FAERS Safety Report 7874236-1 (Version None)
Quarter: 2011Q4

REPORT INFORMATION
  Report Type: 
  Country: None (occurrence: None)
  Receive Date: 20111017
  Receipt Date: 20101206
  Transmission Date: 20120403
  Serious: Yes (Hospitalization)
  Sender: FDA-Public Use
  Company Number: 2010S1000399(0)

PATIENT
  Age: 54 Year
  Sex: Female

DRUGS (8)
  1. DARVOCET-N 100 [Suspect]
     Indication: PAIN
     Dosage: AS REQUIRED, ORAL
     Route: 048
     Dates: start: 20100817, end: 20100801
  2. ALBUTEROL [Concomitant]
  3. UNSPECIFIED ANTIHYPERTENSIVE [Concomitant]
  4. UNSPECIFIED NEBULIZER [Concomitant]
  5. OXYGEN (OXYGEN) [Concomitant]
  6. UNSPECIFIED DIABETES MEDICATION [Concomitant]
  7. SYNTHROID [Concomitant]
  8. ADVAIR DISKUS 100/50 [Concomitant]

REACTIONS (3)
  - CARDIO-RESPIRATORY ARREST [None]
  - SEDATION [None]
  - DYSPNOEA [None]
